FAERS Safety Report 4338240-2 (Version None)
Quarter: 2004Q2

REPORT INFORMATION
  Report Type: 
  Country: None (occurrence: None)
  Receive Date: 20040409
  Receipt Date: 20040330
  Transmission Date: 20050107
  Serious: Yes (Hospitalization)
  Sender: FDA-Public Use
  Company Number: GB-JNJFOC-20040306350

PATIENT
  Age: 47 Year
  Sex: Female

DRUGS (6)
  1. REMICADE [Suspect]
     Indication: RHEUMATOID ARTHRITIS
     Dosage: INTRAVENOUS
     Route: 042
     Dates: start: 20030423, end: 20031101
  2. METHOTREXATE [Concomitant]
  3. CO-PROXAMOL (APOREX) [Concomitant]
  4. OMEPRAZOLE [Concomitant]
  5. AMITRIPTYLINE HCL [Concomitant]
  6. FROBEN (FLURBIPROFEN) [Concomitant]

REACTIONS (6)
  - BIOPSY SKIN ABNORMAL [None]
  - ERYTHEMA [None]
  - FUNGAL SKIN INFECTION [None]
  - HYPERSENSITIVITY [None]
  - SKIN LESION [None]
  - VASCULITIS [None]
